FAERS Safety Report 10777044 (Version 2)
Quarter: 2015Q1

REPORT INFORMATION
  Report Type: Report from Study
  Country: CO (occurrence: CO)
  Receive Date: 20150209
  Receipt Date: 20150302
  Transmission Date: 20150721
  Serious: Yes (Hospitalization)
  Sender: FDA-Public Use
  Company Number: CO-ABBVIE-15K-036-1338888-00

PATIENT
  Age: 52 Year
  Sex: Female
  Weight: 42 kg

DRUGS (3)
  1. INFLASEN [Concomitant]
     Indication: PRODUCT USED FOR UNKNOWN INDICATION
  2. METFORMIN [Concomitant]
     Active Substance: METFORMIN HYDROCHLORIDE
     Indication: PRODUCT USED FOR UNKNOWN INDICATION
  3. HUMIRA [Suspect]
     Active Substance: ADALIMUMAB
     Indication: RHEUMATOID ARTHRITIS
     Route: 058
     Dates: start: 20051012, end: 20150108

REACTIONS (11)
  - Asthenia [Recovering/Resolving]
  - Anal abscess [Recovering/Resolving]
  - Chills [Recovering/Resolving]
  - Vision blurred [Recovering/Resolving]
  - Paraesthesia [Recovering/Resolving]
  - Urosepsis [Recovering/Resolving]
  - Discomfort [Recovering/Resolving]
  - Discomfort [Unknown]
  - Paraesthesia oral [Recovering/Resolving]
  - Jaundice [Recovering/Resolving]
  - Headache [Recovering/Resolving]

NARRATIVE: CASE EVENT DATE: 20150120
